FAERS Safety Report 9491266 (Version 2)
Quarter: 2013Q4

REPORT INFORMATION
  Report Type: Spontaneous
  Country: US (occurrence: US)
  Receive Date: 20130830
  Receipt Date: 20131209
  Transmission Date: 20140711
  Serious: Yes (Death, Hospitalization, Other)
  Sender: FDA-Public Use
  Company Number: US-PFIZER INC-2013247769

PATIENT
  Age: 68 Year
  Sex: Male

DRUGS (24)
  1. SUTENT [Suspect]
     Indication: RENAL CELL CARCINOMA
     Dosage: 37.5 MG, DAILY 4 WEEKS ON 2 WEEKS OFF
     Route: 048
     Dates: start: 201108
  2. SUTENT [Suspect]
     Dosage: 12.5 MG CAP + 25 MG, UNK
     Dates: start: 20130226
  3. ISOSORBIDE DINITRATE [Concomitant]
     Dosage: UNK
  4. NOVOLIN N [Concomitant]
  5. MAGNESIUM [Concomitant]
     Indication: HYPOMAGNESAEMIA
     Dosage: 2 DF, 1X/DAY
     Route: 048
  6. AMBIEN [Concomitant]
     Dosage: 5 MG, 2X/DAY, (2 TABS ONCE A DAY BED TIME X 30 DAYS AS NEEDED)
     Route: 048
  7. LANTUS [Concomitant]
     Dosage: 100 UNITS/ML, 15 UNITS, 2 TIMES A DAY
     Route: 058
  8. NOVOLIN R [Concomitant]
     Dosage: 100 UNITS/ML, 40 UNITS, 3X/DAY (BEFORE MEALS)
  9. PLAVIX [Concomitant]
     Dosage: 75 MG, UNK
     Route: 048
  10. DURAGESIC [Concomitant]
     Indication: BACK PAIN
     Dosage: 1 DF25-25 MCG/HR, 1 PATCH, EVERY 72 HOURS X 30 DAYS AS NEEDED
     Route: 062
  11. DURAGESIC [Concomitant]
     Indication: ARTHRALGIA
  12. PROCET /USA/ [Concomitant]
     Indication: PAIN
     Dosage: 1 DF 500 MG-5 MG, 4X/DAY, EVERY 6HS X 30 DAYS AS NEEDED
     Route: 048
  13. SYMBICORT [Concomitant]
     Dosage: 2 DF (2 PUFFS), 2X/DAY (160/4.5 INHALATIONS AEREOSOL WITH ADAPTER)
     Route: 055
  14. ALLOPURINOL [Concomitant]
     Indication: GOUT
     Dosage: 100 MG, 2X/DAY
     Route: 048
  15. METOPROLOL TARTRATE [Concomitant]
     Dosage: 25 MG, 2X/DAY
     Route: 048
  16. ASPIRIN [Concomitant]
     Dosage: 325 MG, 1X/DAY
     Route: 048
  17. TRILIPIX [Concomitant]
     Dosage: 135 MG, 1X/DAY
     Route: 048
  18. IMDUR [Concomitant]
     Dosage: 30 MG, UNK
     Route: 048
  19. CRESTOR [Concomitant]
     Dosage: 10 MG, 1X/DAY (AT BEDTIME)
     Route: 048
  20. NORVASC [Concomitant]
     Dosage: 2.5 MG, 1X/DAY (5 MG CAPSULE, 0.5 ONCE A DAY)
     Route: 048
  21. LEVOTHYROXINE [Concomitant]
     Dosage: 0.1 MG, 1X/DAY
     Route: 048
  22. DOXYCYCLINE HYCLATE [Concomitant]
     Dosage: 100 MG, 2X/DAY
     Route: 048
  23. MELOXICAM [Concomitant]
     Dosage: 15 MG, 1X/DAY
     Route: 048
  24. CYCLOBENZAPRINE [Concomitant]
     Dosage: 10 MG, 3X/DAY, AS NEEDED
     Route: 048

REACTIONS (13)
  - Disease progression [Fatal]
  - Renal cell carcinoma [Fatal]
  - Cardio-respiratory arrest [Unknown]
  - Myocardial infarction [Unknown]
  - Arthralgia [Unknown]
  - Hernia [Unknown]
  - Pyrexia [Unknown]
  - Gait disturbance [Unknown]
  - Asthenia [Unknown]
  - Fatigue [Unknown]
  - Diarrhoea [Unknown]
  - Contusion [Unknown]
  - Hypothyroidism [Unknown]
